FAERS Safety Report 5132637-9 (Version None)
Quarter: 2006Q4

REPORT INFORMATION
  Report Type: 
  Country: None (occurrence: None)
  Receive Date: 20061017
  Receipt Date: 20061003
  Transmission Date: 20070319
  Serious: Yes (Other)
  Sender: FDA-Public Use
  Company Number: GXKR2006CL05806

PATIENT
  Age: 24 Year
  Sex: Female

DRUGS (3)
  1. PREDNISONE [Suspect]
     Indication: IMPETIGO HERPETIFORMIS
     Dosage: 60 MG, QD, ORAL
     Route: 048
  2. CYCLOSPORINE [Concomitant]
  3. INSULIN (INSULIN) [Concomitant]

REACTIONS (16)
  - ARTHRALGIA [None]
  - BLOOD GLUCOSE INCREASED [None]
  - CAESAREAN SECTION [None]
  - DEHYDRATION [None]
  - DEPRESSION [None]
  - DERMATITIS EXFOLIATIVE [None]
  - DISEASE RECURRENCE [None]
  - DRUG EXPOSURE DURING PREGNANCY [None]
  - ELECTROLYTE IMBALANCE [None]
  - IMPETIGO HERPETIFORMIS [None]
  - METABOLIC DISORDER [None]
  - OLIGOHYDRAMNIOS [None]
  - PERSONALITY DISORDER [None]
  - POSTPARTUM DISORDER [None]
  - PRURITUS [None]
  - SKIN LESION [None]
